FAERS Safety Report 7013331-6 (Version None)
Quarter: 2010Q3

REPORT INFORMATION
  Report Type: 
  Country: None (occurrence: None)
  Receive Date: 20100924
  Receipt Date: 20100914
  Transmission Date: 20110219
  Serious: Yes (Other)
  Sender: FDA-Public Use
  Company Number: PHEH2006US08866

PATIENT
  Sex: Male
  Weight: 87.982 kg

DRUGS (33)
  1. ZOMETA [Suspect]
  2. BACTROBAN                               /NET/ [Concomitant]
     Dosage: UNK
  3. CEPHALEXIN [Concomitant]
     Dosage: UNK
  4. CIPRO [Concomitant]
     Dosage: UNK
  5. HYDROCODONE BITARTRATE AND ACETAMINOPHEN [Concomitant]
     Dosage: UNK
  6. LOTRISONE [Concomitant]
     Dosage: UNK
  7. ZYBAN [Concomitant]
     Dosage: UNK
  8. FLOMAX [Concomitant]
     Dosage: UNK
  9. ALPRAZOLAM [Concomitant]
     Dosage: UNK
  10. APAP W/ CODEINE [Concomitant]
     Dosage: UNK
  11. FUROSEMIDE [Concomitant]
     Dosage: UNK
  12. SULFAMETHOXAZOLE AND TRIMETHOPRIM DOUBLE STRENGTH [Concomitant]
     Dosage: UNK
  13. TRAMADOL HYDROCHLORIDE [Concomitant]
     Dosage: UNK
  14. ZYRTEC [Concomitant]
     Dosage: UNK
  15. MEGESTROL ACETATE [Concomitant]
     Dosage: UNK
  16. PREDNISONE TAB [Concomitant]
     Dosage: UNK
  17. HYDROCORT [Concomitant]
     Dosage: UNK
  18. KETOCONAZOLE [Concomitant]
     Dosage: UNK
  19. RANITIDINE [Concomitant]
     Dosage: UNK
  20. ULTRACET [Concomitant]
     Dosage: UNK
  21. NYSTATIN [Concomitant]
     Dosage: UNK
  22. DEXAMETHASON ^COPHAR^ [Concomitant]
     Dosage: UNK
  23. HYDROCHLOROTHIAZIDE [Concomitant]
     Dosage: UNK
  24. KLOR-CON [Concomitant]
     Dosage: UNK
  25. SPIRIVA [Concomitant]
     Dosage: UNK
  26. PROTONIX [Concomitant]
  27. LUPRON [Concomitant]
     Dosage: UNK
  28. ZOLADEX [Concomitant]
  29. CASODEX [Concomitant]
  30. MEGACE [Concomitant]
  31. OS-CAL [Concomitant]
  32. TAXOTERE [Concomitant]
  33. NAVELBINE [Concomitant]

REACTIONS (21)
  - ABDOMINAL PAIN UPPER [None]
  - ALCOHOL ABUSE [None]
  - ANXIETY [None]
  - BLOOD ALKALINE PHOSPHATASE INCREASED [None]
  - BONE PAIN [None]
  - BRONCHITIS [None]
  - CHEST PAIN [None]
  - DYSPNOEA [None]
  - EXTRASKELETAL OSSIFICATION [None]
  - GYNAECOMASTIA [None]
  - HILAR LYMPHADENOPATHY [None]
  - INJURY [None]
  - LUNG NEOPLASM [None]
  - METASTASES TO BONE [None]
  - METASTATIC NEOPLASM [None]
  - OSTEONECROSIS OF JAW [None]
  - PAIN [None]
  - PROSTATE CANCER METASTATIC [None]
  - SINUSITIS [None]
  - URTICARIA [None]
  - WEIGHT DECREASED [None]
